FAERS Safety Report 7361175-8 (Version None)
Quarter: 2011Q1

REPORT INFORMATION
  Report Type: 
  Country: None (occurrence: None)
  Receive Date: 20110318
  Receipt Date: 20110309
  Transmission Date: 20110831
  Serious: Yes (Other)
  Sender: FDA-Public Use
  Company Number: US-AMGEN-USASP2011013329

PATIENT
  Age: 57 Year
  Sex: Female

DRUGS (1)
  1. ENBREL [Suspect]
     Indication: RHEUMATOID ARTHRITIS
     Dosage: 50 MG, QWK
     Dates: start: 20101201, end: 20110216

REACTIONS (7)
  - COUGH [None]
  - DIARRHOEA [None]
  - NASAL CONGESTION [None]
  - MYALGIA [None]
  - VOMITING [None]
  - SICKLE CELL ANAEMIA WITH CRISIS [None]
  - HAEMATURIA [None]
